FAERS Safety Report 5857183-6 (Version None)
Quarter: 2008Q3

REPORT INFORMATION
  Report Type: 
  Country: None (occurrence: None)
  Receive Date: 20080825
  Receipt Date: 20080818
  Transmission Date: 20090109
  Serious: Yes (Other)
  Sender: FDA-Public Use
  Company Number: PHHY2008JP18643

PATIENT
  Age: 62 Year
  Sex: Male

DRUGS (11)
  1. DIOVAN [Suspect]
     Indication: HYPERTENSION
     Dosage: 80 MG DAILY
     Route: 048
     Dates: start: 20080816
  2. MAGMITT KENEI [Concomitant]
     Dosage: 660 MG, UNK
     Route: 048
  3. EXCEGRAN [Concomitant]
     Dosage: 1.5 G, UNK
     Route: 048
  4. EC DOPARL [Concomitant]
     Dosage: 3 DF, UNK
     Route: 048
  5. MEXILETINE HYDROCHLORIDE [Concomitant]
     Dosage: 300 MG, UNK
     Route: 048
  6. PLETAL [Concomitant]
     Dosage: 2 DF, UNK
     Route: 048
  7. SYMMETREL [Concomitant]
     Dosage: 200 MG, UNK
     Route: 048
  8. ASPIRIN [Concomitant]
     Dosage: 1 DF, UNK
     Route: 048
  9. LANSOPRAZOLE [Concomitant]
     Dosage: 15 MG, UNK
     Route: 048
  10. LIPITOR [Concomitant]
     Dosage: 10 MG, UNK
     Route: 048
  11. FRANDOL [Concomitant]
     Dosage: 40 MG, UNK
     Route: 062

REACTIONS (3)
  - ANAPHYLACTIC SHOCK [None]
  - BLOOD PRESSURE DECREASED [None]
  - WHITE BLOOD CELL COUNT INCREASED [None]
